FAERS Safety Report 12557133 (Version 1)
Quarter: 2016Q3

REPORT INFORMATION
  Report Type: Spontaneous
  Country: CA (occurrence: CA)
  Receive Date: 20160714
  Receipt Date: 20160714
  Transmission Date: 20161109
  Serious: Yes (Other)
  Sender: FDA-Public Use
  Company Number: CA-GLAXOSMITHKLINE-CA2016GSK099662

PATIENT
  Age: 85 Year
  Sex: Female

DRUGS (6)
  1. NEPTAZANE [Concomitant]
     Active Substance: METHAZOLAMIDE
     Dosage: 50 MG, UNK
  2. VITAMIN D [Concomitant]
     Active Substance: CHOLECALCIFEROL
  3. VENTOLIN [Concomitant]
     Active Substance: ALBUTEROL SULFATE
  4. BREO ELLIPTA [Suspect]
     Active Substance: FLUTICASONE FUROATE\VILANTEROL TRIFENATATE
     Indication: ASTHMA
     Dosage: 1 PUFF(S), QD
     Route: 055
  5. CALCIUM [Concomitant]
     Active Substance: CALCIUM
  6. TRAVATAN Z [Concomitant]
     Active Substance: TRAVOPROST

REACTIONS (3)
  - Feeling abnormal [Unknown]
  - Dizziness [Unknown]
  - Disorientation [Unknown]
